FAERS Safety Report 5800869-X (Version None)
Quarter: 2008Q3

REPORT INFORMATION
  Report Type: 
  Country: None (occurrence: None)
  Receive Date: 20080703
  Receipt Date: 20080624
  Transmission Date: 20090109
  Serious: Yes (Hospitalization, Other)
  Sender: FDA-Public Use
  Company Number: US-ABBOTT-08P-163-0459375-00

PATIENT
  Sex: Female
  Weight: 77.2 kg

DRUGS (4)
  1. HUMIRA [Suspect]
     Indication: RHEUMATOID ARTHRITIS
     Route: 058
     Dates: start: 20060501, end: 20080509
  2. BLOOD PRESSURE MEDICATION [Concomitant]
     Indication: PROPHYLAXIS
     Route: 048
     Dates: start: 20070101
  3. BLOOD PRESSURE MEDICATION [Concomitant]
     Indication: HYPERTENSION
  4. ATORVASTATIN CALCIUM [Concomitant]
     Indication: BLOOD CHOLESTEROL INCREASED
     Route: 048
     Dates: start: 20050101

REACTIONS (5)
  - ARTHROPATHY [None]
  - JOINT SWELLING [None]
  - PAIN [None]
  - SWELLING [None]
  - VENOUS THROMBOSIS LIMB [None]
